FAERS Safety Report 18590311 (Version 1)
Quarter: 2020Q4

REPORT INFORMATION
  Report Type: Spontaneous
  Country: PT (occurrence: PT)
  Receive Date: 20201208
  Receipt Date: 20201208
  Transmission Date: 20210114
  Serious: Yes (Disabling)
  Sender: FDA-Public Use
  Company Number: PT-ACCORD-210307

PATIENT
  Age: 65 Year
  Weight: 54 kg

DRUGS (1)
  1. TRAZODONE [Suspect]
     Active Substance: TRAZODONE HYDROCHLORIDE
     Indication: INSOMNIA
     Dosage: 1/2 TABLET OF 100 MG
     Route: 048
     Dates: start: 20201103

REACTIONS (1)
  - Urinary tract obstruction [Recovered/Resolved]

NARRATIVE: CASE EVENT DATE: 20201103
